FAERS Safety Report 8024251-2 (Version None)
Quarter: 2012Q1

REPORT INFORMATION
  Report Type: 
  Country: None (occurrence: None)
  Receive Date: 20120105
  Receipt Date: 20111229
  Transmission Date: 20120608
  Serious: Yes (Death)
  Sender: FDA-Public Use
  Company Number: US-SANOFI-AVENTIS-2011SA085715

PATIENT
  Age: 67 Year
  Sex: Male

DRUGS (3)
  1. MULTAQ [Suspect]
     Indication: ATRIAL FIBRILLATION
     Route: 065
     Dates: start: 20110101, end: 20110101
  2. ALL OTHER THERAPEUTIC PRODUCTS [Concomitant]
  3. COUMADIN [Concomitant]

REACTIONS (1)
  - CARDIAC ARREST [None]
